FAERS Safety Report 6263442-8 (Version None)
Quarter: 2009Q3

REPORT INFORMATION
  Report Type: 
  Country: None (occurrence: None)
  Receive Date: 20090710
  Receipt Date: 20090217
  Transmission Date: 20100115
  Serious: No
  Sender: FDA-Public Use
  Company Number: A0769108A

PATIENT
  Age: 83 Year
  Sex: Female

DRUGS (2)
  1. FLOVENT [Suspect]
     Dosage: 1SPR PER DAY
     Route: 055
     Dates: start: 20080101
  2. ALBUTEROL [Concomitant]

REACTIONS (2)
  - DEFAECATION URGENCY [None]
  - POLLAKIURIA [None]
